FAERS Safety Report 7397648-1 (Version None)
Quarter: 2011Q2

REPORT INFORMATION
  Report Type: 
  Country: None (occurrence: None)
  Receive Date: 20110406
  Receipt Date: 20110328
  Transmission Date: 20111010
  Serious: Yes (Disabling, Other)
  Sender: FDA-Public Use
  Company Number: GB-ASTRAZENECA-2011SE17384

PATIENT
  Age: 36 Year
  Sex: Male
  Weight: 110 kg

DRUGS (4)
  1. EPILIM CHRONO [Concomitant]
     Dosage: 1800 MG
  2. MIRTAZAPINE [Concomitant]
  3. OLMESARTAN MEDOXOMIL [Concomitant]
  4. QUETIAPINE [Suspect]
     Indication: AFFECTIVE DISORDER
     Dosage: 300 MG
     Route: 048
     Dates: start: 20110301

REACTIONS (4)
  - FALL [None]
  - PARAESTHESIA [None]
  - MUSCULAR WEAKNESS [None]
  - FEELING COLD [None]
